FAERS Safety Report 14470397 (Version 3)
Quarter: 2018Q1

REPORT INFORMATION
  Report Type: Spontaneous
  Country: US (occurrence: US)
  Receive Date: 20180131
  Receipt Date: 20180215
  Transmission Date: 20180509
  Serious: No
  Sender: FDA-Public Use
  Company Number: US-GLAXOSMITHKLINE-US2018GSK016664

PATIENT
  Sex: Female

DRUGS (1)
  1. VENTOLIN HFA [Suspect]
     Active Substance: ALBUTEROL SULFATE
     Indication: BRONCHITIS
     Dosage: UNK
     Route: 055

REACTIONS (12)
  - Chest discomfort [Unknown]
  - Dysphonia [Unknown]
  - Muscle spasms [Unknown]
  - Nervousness [Unknown]
  - Heart rate increased [Unknown]
  - Drug ineffective [Unknown]
  - Tremor [Unknown]
  - Pain [Unknown]
  - Abdominal pain upper [Unknown]
  - Headache [Unknown]
  - Muscular weakness [Unknown]
  - Product use in unapproved indication [Unknown]
